FAERS Safety Report 4281844-6 (Version None)
Quarter: 2004Q1

REPORT INFORMATION
  Report Type: 
  Country: None (occurrence: None)
  Receive Date: 20040107
  Receipt Date: 20031103
  Transmission Date: 20041129
  Serious: Yes (Other)
  Sender: FDA-Public Use
  Company Number: A03200302663

PATIENT
  Age: 68 Year
  Sex: Female
  Weight: 124.1495 kg

DRUGS (2)
  1. ARIXTRA [Suspect]
     Indication: KNEE OPERATION
     Dosage: INTRAVENOUS NOS
     Route: 042
     Dates: start: 20031021, end: 20031028
  2. ARIXTRA [Suspect]
     Indication: THROMBOSIS PROPHYLAXIS
     Dosage: INTRAVENOUS NOS
     Route: 042
     Dates: start: 20031021, end: 20031028

REACTIONS (7)
  - ANAEMIA [None]
  - BODY TEMPERATURE INCREASED [None]
  - DEEP VEIN THROMBOSIS [None]
  - DRUG INEFFECTIVE [None]
  - EPISTAXIS [None]
  - MUSCLE SPASMS [None]
  - OEDEMA [None]
